FAERS Safety Report 5167355-4 (Version None)
Quarter: 2006Q4

REPORT INFORMATION
  Report Type: 
  Country: None (occurrence: None)
  Receive Date: 20061207
  Receipt Date: 20061120
  Transmission Date: 20070319
  Serious: Yes (Other)
  Sender: FDA-Public Use
  Company Number: GB-ABBOTT-06P-167-0351210-00

PATIENT
  Sex: Male
  Weight: 98 kg

DRUGS (2)
  1. REDUCTIL 10 MG [Suspect]
     Indication: OBESITY
     Route: 048
     Dates: start: 20061116, end: 20061118
  2. PREDNISOLONE [Concomitant]
     Indication: COLITIS ULCERATIVE
     Route: 048
     Dates: start: 20061118, end: 20061123

REACTIONS (1)
  - COLITIS ULCERATIVE [None]
